FAERS Safety Report 6463584-8 (Version None)
Quarter: 2009Q4

REPORT INFORMATION
  Report Type: 
  Country: None (occurrence: None)
  Receive Date: 20091201
  Receipt Date: 20090727
  Transmission Date: 20100525
  Serious: Yes (Hospitalization)
  Sender: FDA-Public Use
  Company Number: JP-ELI_LILLY_AND_COMPANY-JP200907006005

PATIENT
  Sex: Female
  Weight: 58 kg

DRUGS (2)
  1. SOMATROPIN [Suspect]
     Indication: GROWTH HORMONE DEFICIENCY
     Dosage: 0.08 MG, DAILY (1/D)
     Route: 058
     Dates: start: 20070730
  2. LIPOVAS /00848101/ [Concomitant]
     Indication: DYSLIPIDAEMIA
     Dosage: 10 MG, DAILY (1/D)
     Route: 048
     Dates: start: 20040101, end: 20090331

REACTIONS (1)
  - PITUITARY TUMOUR BENIGN [None]
